FAERS Safety Report 5642984-X (Version None)
Quarter: 2008Q1

REPORT INFORMATION
  Report Type: 
  Country: None (occurrence: None)
  Receive Date: 20080228
  Receipt Date: 20080220
  Transmission Date: 20080703
  Serious: Yes (Death)
  Sender: FDA-Public Use
  Company Number: B0505034A

PATIENT
  Age: 40 Year
  Sex: Female
  Weight: 70 kg

DRUGS (5)
  1. LAPATINIB [Suspect]
     Dosage: 1250MG PER DAY
     Route: 048
     Dates: start: 20080109, end: 20080120
  2. CAPECITABINE [Suspect]
     Dosage: 1900MG TWICE PER DAY
     Route: 048
     Dates: start: 20080109, end: 20080120
  3. OXYCONTIN [Concomitant]
     Indication: DRUG USE FOR UNKNOWN INDICATION
     Dosage: 40MG THREE TIMES PER DAY
     Route: 048
     Dates: start: 20071104
  4. DEXAMETHASONE TAB [Concomitant]
     Indication: RADIOTHERAPY
     Dosage: 1.5MG PER DAY
     Route: 048
     Dates: start: 20080107
  5. UNKNOWN DRUG [Concomitant]
     Indication: DRUG USE FOR UNKNOWN INDICATION
     Dosage: 10MG PER DAY
     Route: 048

REACTIONS (2)
  - DEATH [None]
  - HAEMORRHAGE [None]
